FAERS Safety Report 10539970 (Version 2)
Quarter: 2015Q1

REPORT INFORMATION
  Report Type: Spontaneous
  Country: CN (occurrence: CN)
  Receive Date: 20141024
  Receipt Date: 20150216
  Transmission Date: 20150720
  Serious: Yes (Other)
  Sender: FDA-Public Use
  Company Number: CN-ROCHE-1479578

PATIENT
  Age: 76 Year
  Sex: Male
  Weight: 56 kg

DRUGS (10)
  1. XELODA [Suspect]
     Active Substance: CAPECITABINE
     Dosage: 1500MG IN THE MORNING AND 500MG IN THE EVENING
     Route: 048
     Dates: start: 20150210
  2. FLUOROURACIL. [Concomitant]
     Active Substance: FLUOROURACIL
     Indication: METASTASES TO LUNG
  3. AVASTIN [Suspect]
     Active Substance: BEVACIZUMAB
     Dosage: FORM STHRENTH: 100 MG/4ML
     Route: 041
     Dates: start: 201412, end: 201501
  4. FLUOROURACIL. [Concomitant]
     Active Substance: FLUOROURACIL
     Indication: RECTAL CANCER METASTATIC
  5. XELODA [Suspect]
     Active Substance: CAPECITABINE
     Indication: RECTAL CANCER METASTATIC
     Route: 048
     Dates: start: 20150208, end: 20150208
  6. XELODA [Suspect]
     Active Substance: CAPECITABINE
     Dosage: 1500MG IN THE MORNING AND 1000 IN THE EVENING
     Route: 048
     Dates: start: 20150209, end: 20150209
  7. AVASTIN [Suspect]
     Active Substance: BEVACIZUMAB
     Indication: RECTAL CANCER
     Dosage: FORM STHRENTH: 100 MG/4ML
     Route: 041
     Dates: start: 2010
  8. AVASTIN [Suspect]
     Active Substance: BEVACIZUMAB
     Dosage: FORM STHRENTH: 100 MG/4ML
     Route: 041
     Dates: start: 20150207
  9. IRINOTECAN [Concomitant]
     Active Substance: IRINOTECAN
     Indication: METASTASES TO LUNG
  10. IRINOTECAN [Concomitant]
     Active Substance: IRINOTECAN
     Indication: RECTAL CANCER METASTATIC
     Route: 041
     Dates: start: 201412, end: 201502

REACTIONS (3)
  - Metastases to lung [Recovering/Resolving]
  - Insomnia [Not Recovered/Not Resolved]
  - Feeling hot [Not Recovered/Not Resolved]

NARRATIVE: CASE EVENT DATE: 201409
